FAERS Safety Report 25480249 (Version 3)
Quarter: 2025Q3

REPORT INFORMATION
  Report Type: Spontaneous
  Country: TR (occurrence: GB)
  Receive Date: 20250625
  Receipt Date: 20250702
  Transmission Date: 20251021
  Serious: Yes (Hospitalization)
  Sender: ABBVIE
  Company Number: TR-ABBVIE-6340879

PATIENT

DRUGS (1)
  1. BOTOX [Suspect]
     Active Substance: ONABOTULINUMTOXINA
     Indication: Skin cosmetic procedure
     Route: 065

REACTIONS (4)
  - Botulism [Unknown]
  - Suspected counterfeit product [Unknown]
  - Visual impairment [Unknown]
  - Suspected product contamination [Unknown]
